FAERS Safety Report 8657841 (Version 4)
Quarter: 2013Q1

REPORT INFORMATION
  Report Type: Report from Study
  Country: BR (occurrence: BR)
  Receive Date: 20120710
  Receipt Date: 20130218
  Transmission Date: 20140127
  Serious: Yes (Life-Threatening, Hospitalization)
  Sender: FDA-Public Use
  Company Number: BR-NOVOPROD-355338

PATIENT
  Age: 68 Year
  Sex: Male
  Weight: 83.5 kg

DRUGS (9)
  1. LIRAGLUTIDE FLEXPEN [Suspect]
     Indication: TYPE 2 DIABETES MELLITUS
     Dosage: 1.8 MG, QD
     Route: 058
     Dates: start: 20110913, end: 20120628
  2. LIRAGLUTIDE FLEXPEN [Suspect]
     Dosage: 1.8 MG, QD
     Route: 058
     Dates: start: 20120721
  3. ACETYLSALICYLIC ACID [Concomitant]
     Indication: PROPHYLAXIS
     Dosage: 100 MG, QD
     Dates: start: 200807
  4. FENOFIBRATE [Concomitant]
     Indication: HYPERTRIGLYCERIDAEMIA
     Dosage: 200 MG, QD
     Dates: start: 2009
  5. LOSARTAN [Concomitant]
     Indication: HYPERTENSION
     Dosage: 50 MG, QD
     Dates: start: 2010
  6. CARVEDILOL [Concomitant]
     Indication: CORONARY ARTERY DISEASE
     Dosage: 12.5 MG, QD
     Dates: start: 20120720
  7. NPH INSULIN [Concomitant]
     Indication: DIABETES MELLITUS
     Dosage: 34 IU, QD
     Dates: start: 20120720
  8. ATORVASTATIN [Concomitant]
     Indication: FUNGAL INFECTION
     Dosage: 20 MG, QD
     Dates: start: 200906
  9. METFORMIN [Concomitant]
     Indication: DIABETES MELLITUS
     Dosage: 1700 MG, QD
     Dates: start: 2000

REACTIONS (1)
  - Angina pectoris [Recovered/Resolved]
